FAERS Safety Report 5379466-9 (Version None)
Quarter: 2007Q3

REPORT INFORMATION
  Report Type: 
  Country: None (occurrence: None)
  Receive Date: 20070705
  Receipt Date: 20070621
  Transmission Date: 20080115
  Serious: Yes (Hospitalization)
  Sender: FDA-Public Use
  Company Number: JP-GENENTECH-243859

PATIENT
  Sex: Male
  Weight: 74 kg

DRUGS (5)
  1. BEVACIZUMAB [Suspect]
     Indication: NON-SMALL CELL LUNG CANCER
     Dosage: 15 MG/KG, Q3W
     Route: 042
     Dates: start: 20061212
  2. CARBOPLATIN [Suspect]
     Indication: NON-SMALL CELL LUNG CANCER
     Dosage: 6 UNIT, Q3W
     Route: 042
     Dates: start: 20061212, end: 20070330
  3. PACLITAXEL [Suspect]
     Indication: NON-SMALL CELL LUNG CANCER
     Dosage: 200 MG/M2, Q3W
     Route: 042
     Dates: start: 20061212, end: 20070330
  4. ANTI-CONSTIPATION MEDICATION NOS [Concomitant]
     Indication: DRUG USE FOR UNKNOWN INDICATION
  5. NIFEDIPINE [Concomitant]
     Indication: DRUG USE FOR UNKNOWN INDICATION
     Dates: start: 20061207

REACTIONS (1)
  - JAUNDICE CHOLESTATIC [None]
